FAERS Safety Report 8561673 (Version 2)
Quarter: 2012Q4

REPORT INFORMATION
  Report Type: 
  Country: TR (occurrence: TR)
  Receive Date: 20120515
  Receipt Date: 20121115
  Transmission Date: 20130627
  Serious: Yes (Other)
  Sender: FDA-Public Use
  Company Number: TR-AMGEN-TURSP2012029186

PATIENT
  Age: 36 Year
  Sex: Female

DRUGS (4)
  1. ENBREL [Suspect]
     Indication: RHEUMATOID ARTHRITIS
     Dosage: 50 mg, weekly
     Route: 058
     Dates: start: 20110509, end: 20120424
  2. ENBREL [Suspect]
     Indication: PSORIASIS
     Dosage: 50 mg, weekly
     Route: 058
     Dates: end: 201210
  3. AMOXICILLIN\CLAVULANIC ACID [Suspect]
     Indication: TOOTH INFECTION
     Dosage: 625 mg, UNK
  4. METHOTREXATE [Concomitant]
     Dosage: UNK
     Dates: start: 201201

REACTIONS (13)
  - Dysphonia [Recovered/Resolved]
  - Emotional disorder [Recovered/Resolved]
  - Skin burning sensation [Recovering/Resolving]
  - Erythema [Recovering/Resolving]
  - Tooth infection [Recovered/Resolved]
  - Rash [Recovering/Resolving]
  - Affective disorder [Unknown]
  - Upper-airway cough syndrome [Not Recovered/Not Resolved]
  - Cough [Not Recovered/Not Resolved]
  - Drug effect incomplete [Recovered/Resolved]
  - Bronchitis [Not Recovered/Not Resolved]
  - Psoriasis [Recovered/Resolved]
  - Influenza [Recovered/Resolved]
